FAERS Safety Report 17530556 (Version 5)
Quarter: 2021Q1

REPORT INFORMATION
  Report Type: Not Available
  Country: US (occurrence: US)
  Receive Date: 20200311
  Receipt Date: 20210210
  Transmission Date: 20210419
  Serious: No
  Sender: FDA-Public Use
  Company Number: US-NEUROCRINE BIOSCIENCES INC.-2020NBI00710

PATIENT
  Age: 70 Year
  Sex: Female

DRUGS (10)
  1. INGREZZA [Suspect]
     Active Substance: VALBENAZINE
     Dosage: DELIVERY OF INGREZZA WAS SCHEDULED FOR 12/NOV/2020
     Route: 048
     Dates: start: 202011
  2. LEVOTHYROXINE. [Concomitant]
     Active Substance: LEVOTHYROXINE
  3. INGREZZA [Suspect]
     Active Substance: VALBENAZINE
     Indication: TARDIVE DYSKINESIA
     Route: 048
     Dates: start: 20190607
  4. INGREZZA [Suspect]
     Active Substance: VALBENAZINE
     Route: 048
     Dates: start: 202101
  5. DILTIAZEM. [Concomitant]
     Active Substance: DILTIAZEM
  6. INGREZZA [Suspect]
     Active Substance: VALBENAZINE
     Route: 048
     Dates: end: 20201008
  7. DULOXETINE. [Concomitant]
     Active Substance: DULOXETINE
  8. ELIQUIS [Concomitant]
     Active Substance: APIXABAN
  9. CARBIDOPA?LEVODOPA [Concomitant]
     Active Substance: CARBIDOPA\LEVODOPA
  10. BUPROPION. [Concomitant]
     Active Substance: BUPROPION

REACTIONS (5)
  - Parkinsonism [Unknown]
  - Urinary tract infection [Unknown]
  - Balance disorder [Unknown]
  - Muscular weakness [Unknown]
  - Urinary tract infection [Not Recovered/Not Resolved]

NARRATIVE: CASE EVENT DATE: 202006
